FAERS Safety Report 15994665 (Version 2)
Quarter: 2019Q1

REPORT INFORMATION
  Report Type: Spontaneous
  Country: US (occurrence: US)
  Receive Date: 20190222
  Receipt Date: 20190306
  Transmission Date: 20190418
  Serious: Yes (Other)
  Sender: FDA-Public Use
  Company Number: PHEH2019US007396

PATIENT
  Sex: Female

DRUGS (1)
  1. TASIGNA [Suspect]
     Active Substance: NILOTINIB
     Indication: CHRONIC MYELOID LEUKAEMIA
     Dosage: 2 DF, BID
     Route: 048
     Dates: start: 201303, end: 20170210

REACTIONS (51)
  - Acute sinusitis [Unknown]
  - Tendonitis [Unknown]
  - Vascular occlusion [Unknown]
  - Haematuria [Unknown]
  - Haemorrhoids [Unknown]
  - Pharyngitis [Unknown]
  - Facial paralysis [Unknown]
  - Peripheral vascular disorder [Unknown]
  - Neuropathy peripheral [Unknown]
  - Otitis media [Unknown]
  - Essential hypertension [Unknown]
  - Goitre [Unknown]
  - Migraine with aura [Unknown]
  - Dermatitis allergic [Unknown]
  - Hypoaesthesia [Unknown]
  - Arteriosclerosis [Unknown]
  - Cerebrovascular disorder [Unknown]
  - Facial paresis [Unknown]
  - Aphthous ulcer [Unknown]
  - Cystitis [Unknown]
  - Bronchitis [Unknown]
  - Pain in extremity [Unknown]
  - Chest pain [Unknown]
  - Hyperlipidaemia [Unknown]
  - Osteonecrosis [Unknown]
  - Carotid artery occlusion [Unknown]
  - Gastrointestinal haemorrhage [Unknown]
  - Ligament sprain [Unknown]
  - Abdominal pain [Unknown]
  - Cervical spinal stenosis [Unknown]
  - Carotid artery stenosis [Unknown]
  - Pneumonitis [Unknown]
  - Ovarian cyst [Unknown]
  - Conjunctivitis [Unknown]
  - Arthralgia [Unknown]
  - Thrombocytopenia [Unknown]
  - Emphysema [Unknown]
  - Chronic obstructive pulmonary disease [Unknown]
  - Sinusitis [Unknown]
  - Hypertension [Unknown]
  - Rectal haemorrhage [Unknown]
  - Peripheral arterial occlusive disease [Unknown]
  - Tension headache [Unknown]
  - Sciatica [Unknown]
  - Peripheral swelling [Unknown]
  - Aortic aneurysm [Unknown]
  - Aortic arteriosclerosis [Unknown]
  - Arthritis [Unknown]
  - Dysuria [Unknown]
  - Hypercholesterolaemia [Unknown]
  - Intermittent claudication [Unknown]
